FAERS Safety Report 8164858 (Version 4)
Quarter: 2016Q3

REPORT INFORMATION
  Report Type: Spontaneous
  Country: JP (occurrence: JP)
  Receive Date: 20111002
  Receipt Date: 20160930
  Transmission Date: 20161109
  Serious: Yes (Death, Other)
  Sender: FDA-Public Use
  Company Number: JP-BRISTOL-MYERS SQUIBB COMPANY-16076143

PATIENT
  Age: 45 Year
  Sex: Male
  Weight: 86 kg

DRUGS (13)
  1. ABILIFY [Suspect]
     Active Substance: ARIPIPRAZOLE
     Dosage: 6 MG, QD
     Route: 048
     Dates: start: 20110708, end: 20110711
  2. CREMIN [Suspect]
     Active Substance: MOSAPRAMINE
     Indication: SCHIZOPHRENIA
     Dosage: 30 MG, BID
     Route: 048
     Dates: start: 19961001, end: 20110719
  3. HIBERNA [Suspect]
     Active Substance: PROMETHAZINE HYDROCHLORIDE
     Indication: PARKINSONISM
     Dosage: 70 MG, BID
     Route: 048
     Dates: start: 19961001, end: 20110719
  4. FLUPHENAZINE DECANOATE. [Suspect]
     Active Substance: FLUPHENAZINE DECANOATE
     Indication: SCHIZOPHRENIA
     Dosage: 50 MG, UNK
     Route: 030
     Dates: start: 20040525, end: 20110620
  5. ABILIFY [Suspect]
     Active Substance: ARIPIPRAZOLE
     Dosage: 9 MG, QD
     Route: 048
     Dates: start: 20110712, end: 20110719
  6. PENTONA [Suspect]
     Active Substance: MAZATICOL HYDROCHLORIDE
     Indication: PARKINSONISM
     Dosage: 6 MG, BID
     Route: 048
     Dates: start: 19961001, end: 20110719
  7. SYMMETREL [Suspect]
     Active Substance: AMANTADINE HYDROCHLORIDE
     Indication: PARKINSONISM
     Dosage: 100 MG, BID
     Route: 048
     Dates: start: 19961001, end: 20110719
  8. FLUDECASIN [Suspect]
     Active Substance: FLUPHENAZINE DECANOATE
     Indication: SCHIZOPHRENIA
     Dosage: 50 MG, QM
     Route: 030
     Dates: start: 20040525, end: 20110620
  9. HORIZON [Concomitant]
     Active Substance: DIAZEPAM
     Indication: PARKINSONISM
     Dosage: 4 MG, BID
     Route: 048
     Dates: start: 19971014, end: 20110719
  10. LASIX [Concomitant]
     Active Substance: FUROSEMIDE
     Indication: PRODUCT USED FOR UNKNOWN INDICATION
     Dosage: TAB.
     Route: 048
     Dates: start: 20090618, end: 20110719
  11. ABILIFY [Suspect]
     Active Substance: ARIPIPRAZOLE
     Indication: SCHIZOPHRENIA
     Dosage: 3 MG, QD
     Route: 048
     Dates: start: 20110705, end: 20110707
  12. AKINETON [Suspect]
     Active Substance: BIPERIDEN HYDROCHLORIDE
     Indication: PARKINSONISM
     Dosage: 3 MG, BID
     Route: 048
     Dates: start: 19961001, end: 20110719
  13. FLUITRAN [Concomitant]
     Active Substance: TRICHLORMETHIAZIDE
     Indication: PRODUCT USED FOR UNKNOWN INDICATION
     Dosage: 3 MG, QD
     Route: 048
     Dates: start: 20100114, end: 20110719

REACTIONS (6)
  - Renal impairment [Unknown]
  - Dehydration [None]
  - Neuroleptic malignant syndrome [Fatal]
  - Respiratory failure [Fatal]
  - Pneumonia [Fatal]
  - Ileus [Not Recovered/Not Resolved]

NARRATIVE: CASE EVENT DATE: 20110719
